FAERS Safety Report 16343297 (Version 8)
Quarter: 2019Q3

REPORT INFORMATION
  Report Type: Report from Study
  Country: US (occurrence: US)
  Receive Date: 20190522
  Receipt Date: 20190814
  Transmission Date: 20191004
  Serious: Yes (Death, Hospitalization)
  Sender: FDA-Public Use
  Company Number: US-ACTELION-A-NJ2019-190683

PATIENT
  Age: 57 Year
  Sex: Male
  Weight: 83.9 kg

DRUGS (33)
  1. UPTRAVI [Suspect]
     Active Substance: SELEXIPAG
     Indication: PULMONARY ARTERIAL HYPERTENSION
     Dosage: 1400 MCG, BID
     Route: 048
  2. POTASSIUM CHLORIDE. [Concomitant]
     Active Substance: POTASSIUM CHLORIDE
  3. LOPRESSOR [Concomitant]
     Active Substance: METOPROLOL TARTRATE
  4. DEMADEX [Concomitant]
     Active Substance: TORSEMIDE
  5. ALLEGRA [Concomitant]
     Active Substance: FEXOFENADINE HYDROCHLORIDE
  6. ALLOPURINOL. [Concomitant]
     Active Substance: ALLOPURINOL
  7. FERROUS SULFATE. [Concomitant]
     Active Substance: FERROUS SULFATE
  8. IRON [Concomitant]
     Active Substance: IRON
  9. PROAIR HFA [Concomitant]
     Active Substance: ALBUTEROL SULFATE
  10. SILDENAFIL CITRATE. [Concomitant]
     Active Substance: SILDENAFIL CITRATE
  11. SYNTHROID [Concomitant]
     Active Substance: LEVOTHYROXINE SODIUM
  12. MUCINEX [Concomitant]
     Active Substance: GUAIFENESIN
  13. ALBUTEROL. [Concomitant]
     Active Substance: ALBUTEROL
  14. LEVEMIR [Concomitant]
     Active Substance: INSULIN DETEMIR
  15. TYLENOL [Concomitant]
     Active Substance: ACETAMINOPHEN
  16. UPTRAVI [Suspect]
     Active Substance: SELEXIPAG
     Dosage: 1600 MCG, BID
     Route: 048
     Dates: end: 20190726
  17. FOLVITE [Concomitant]
     Active Substance: FOLIC ACID
  18. DUONEB [Concomitant]
     Active Substance: ALBUTEROL SULFATE\IPRATROPIUM BROMIDE
  19. UPTRAVI [Suspect]
     Active Substance: SELEXIPAG
     Dosage: 600 MCG, BID
     Route: 048
     Dates: start: 20160620
  20. AMLODIPINE [Concomitant]
     Active Substance: AMLODIPINE BESYLATE
  21. NORVASC [Concomitant]
     Active Substance: AMLODIPINE BESYLATE
  22. TORSEMIDE. [Concomitant]
     Active Substance: TORSEMIDE
  23. MULTIVITAMIN [Concomitant]
     Active Substance: VITAMINS
  24. THIAMINE. [Concomitant]
     Active Substance: THIAMINE
  25. COUMADIN [Concomitant]
     Active Substance: WARFARIN SODIUM
  26. UPTRAVI [Suspect]
     Active Substance: SELEXIPAG
     Dosage: 1800 MCG, BID
     Route: 048
  27. WARFARIN [Concomitant]
     Active Substance: WARFARIN
  28. MEVACOR [Concomitant]
     Active Substance: LOVASTATIN
  29. PULMICORT TURBUHALER [Concomitant]
     Active Substance: BUDESONIDE
  30. UPTRAVI [Suspect]
     Active Substance: SELEXIPAG
     Dosage: UNK
     Route: 048
  31. PROTONIX [Concomitant]
     Active Substance: PANTOPRAZOLE SODIUM
  32. FLONASE [Concomitant]
     Active Substance: FLUTICASONE PROPIONATE
  33. SPIRIVA [Concomitant]
     Active Substance: TIOTROPIUM BROMIDE MONOHYDRATE

REACTIONS (18)
  - Cardiac failure congestive [Unknown]
  - Chronic kidney disease [Unknown]
  - Pain [Recovered/Resolved]
  - Acute kidney injury [Not Recovered/Not Resolved]
  - Aspiration [Recovered/Resolved]
  - Diarrhoea [Recovered/Resolved]
  - Death [Fatal]
  - Acute respiratory failure [Not Recovered/Not Resolved]
  - Asthenia [Unknown]
  - Pneumonia [Unknown]
  - Hospice care [Recovered/Resolved]
  - Dyspnoea [Unknown]
  - Fluid overload [Not Recovered/Not Resolved]
  - Sleep apnoea syndrome [Unknown]
  - Nephropathy [Not Recovered/Not Resolved]
  - Gastrooesophageal reflux disease [Recovered/Resolved]
  - Hypoxia [Recovered/Resolved]
  - Balance disorder [Unknown]

NARRATIVE: CASE EVENT DATE: 20190628
